FAERS Safety Report 18940386 (Version 2)
Quarter: 2021Q1

REPORT INFORMATION
  Report Type: Spontaneous
  Country: JP (occurrence: JP)
  Receive Date: 20210225
  Receipt Date: 20210330
  Transmission Date: 20210420
  Serious: Yes (Other)
  Sender: FDA-Public Use
  Company Number: JP-GLAXOSMITHKLINE-JPCH2020000135

PATIENT
  Age: 71 Year
  Sex: Male

DRUGS (2)
  1. NICORETTE [Suspect]
     Active Substance: NICOTINE
     Dosage: STARTED USING THE PRODUCT AGAIN ONE MONTH PRIOR TO 16?MAR?2021
     Route: 048
  2. NICORETTE [Suspect]
     Active Substance: NICOTINE
     Indication: SMOKING CESSATION THERAPY
     Dosage: 1 DF, UNK
     Route: 048
     Dates: end: 20201214

REACTIONS (2)
  - Intentional product use issue [Not Recovered/Not Resolved]
  - Rectal cancer stage II [Not Recovered/Not Resolved]

NARRATIVE: CASE EVENT DATE: 20200901
